FAERS Safety Report 6683386-7 (Version None)
Quarter: 2010Q2

REPORT INFORMATION
  Report Type: 
  Country: None (occurrence: None)
  Receive Date: 20100415
  Receipt Date: 20100408
  Transmission Date: 20101027
  Serious: Yes (Hospitalization)
  Sender: FDA-Public Use
  Company Number: FR-WYE-H14488910

PATIENT
  Age: 80 Year
  Sex: Male

DRUGS (6)
  1. CORDARONE [Suspect]
     Dosage: UNSPECIFIED
     Dates: start: 20091210
  2. HYPERIUM [Concomitant]
  3. TAHOR [Concomitant]
  4. ASPEGIC 1000 [Concomitant]
  5. LASIX [Suspect]
     Dosage: UNSPECIFIED
     Route: 048
     Dates: start: 20091210, end: 20100308
  6. LERCAN [Concomitant]

REACTIONS (1)
  - TOXIC SKIN ERUPTION [None]
